FAERS Safety Report 20942783 (Version 1)
Quarter: 2022Q2

REPORT INFORMATION
  Report Type: Spontaneous
  Country: US (occurrence: US)
  Receive Date: 20220610
  Receipt Date: 20220610
  Transmission Date: 20220720
  Serious: No
  Sender: FDA-Public Use
  Company Number: US-ALLERGAN-2206841US

PATIENT
  Age: 43 Year
  Sex: Male

DRUGS (2)
  1. VIBERZI [Suspect]
     Active Substance: ELUXADOLINE
     Indication: Irritable bowel syndrome
     Dosage: 100 MG, BID
     Route: 048
     Dates: start: 20220212
  2. VIBERZI [Suspect]
     Active Substance: ELUXADOLINE
     Dosage: 100 MG, QD
     Route: 048
     Dates: start: 20191203, end: 20200210

REACTIONS (2)
  - Insomnia [Not Recovered/Not Resolved]
  - Therapy interrupted [Unknown]

NARRATIVE: CASE EVENT DATE: 20200210
